FAERS Safety Report 19719883 (Version 1)
Quarter: 2021Q3

REPORT INFORMATION
  Report Type: Report from Study
  Country: US (occurrence: US)
  Receive Date: 20210819
  Receipt Date: 20210819
  Transmission Date: 20211014
  Serious: Yes (Other)
  Sender: FDA-Public Use
  Company Number: US-ASTRAZENECA-2021A679545

PATIENT
  Sex: Male

DRUGS (2)
  1. LYNPARZA [Suspect]
     Active Substance: OLAPARIB
     Indication: MALIGNANT NIPPLE NEOPLASM MALE
     Route: 048
  2. LYNPARZA [Suspect]
     Active Substance: OLAPARIB
     Indication: MALIGNANT NIPPLE NEOPLASM MALE
     Dosage: DECREASED HIS DOSE FROM 4 TABLETS TO 2 TABLETS A DAY
     Route: 048

REACTIONS (3)
  - Haematochezia [Unknown]
  - Bone marrow disorder [Unknown]
  - Adverse drug reaction [Unknown]
